FAERS Safety Report 10984192 (Version 8)
Quarter: 2015Q3

REPORT INFORMATION
  Report Type: Report from Study
  Country: JP (occurrence: JP)
  Receive Date: 20150403
  Receipt Date: 20150702
  Transmission Date: 20151125
  Serious: Yes (Hospitalization)
  Sender: FDA-Public Use
  Company Number: JP-MERCK-1503JPN006302

PATIENT
  Age: 66 Year
  Sex: Male
  Weight: 56.4 kg

DRUGS (14)
  1. PEMBROLIZUMAB. [Suspect]
     Active Substance: PEMBROLIZUMAB
     Indication: GASTRIC CANCER
     Dosage: 10 MG/KG, Q2W
     Route: 042
     Dates: start: 20140320, end: 20150220
  2. PEMBROLIZUMAB. [Suspect]
     Active Substance: PEMBROLIZUMAB
     Dosage: 10 MG/KG, Q2W
     Route: 042
     Dates: start: 20150626
  3. ALOGLIPTIN BENZOATE [Concomitant]
     Active Substance: ALOGLIPTIN BENZOATE
     Indication: DIABETES MELLITUS
     Dosage: 25 MG, QD
     Route: 048
     Dates: start: 201211, end: 20150325
  4. RINDERON V [Concomitant]
     Active Substance: BETAMETHASONE VALERATE
     Indication: RASH
     Dosage: TOTAL DAILY DOSE: 1 APPLICATION, PRN
     Route: 061
     Dates: start: 20140502, end: 20150305
  5. GLIMEPIRIDE. [Concomitant]
     Active Substance: GLIMEPIRIDE
     Dosage: TOTAL DAILY DOSE: 1 MG, UNK
     Dates: start: 20150410, end: 20150423
  6. HIRUDOID [Concomitant]
     Active Substance: GLYCOSAMINOGLYCANS
     Indication: RASH
     Dosage: TOTAL DAILY DOSE: 1 APPLICATION, PRN
     Route: 058
     Dates: start: 20140822
  7. GLIMEPIRIDE. [Concomitant]
     Active Substance: GLIMEPIRIDE
     Indication: DIABETES MELLITUS
     Dosage: 0.5 MG, QD
     Route: 048
     Dates: start: 20141227, end: 20150409
  8. RESTAMIN (DIPHENHYDRAMINE HYDROCHLORIDE (+) ENOXOLONE (+) ZINC OXIDE) [Concomitant]
     Indication: PRURITUS
     Dosage: TOTAL DAILY DOSE: 1 APPLICATION, PRN
     Route: 061
     Dates: start: 20140919
  9. ONON [Concomitant]
     Active Substance: PRANLUKAST
     Indication: PRURITUS
     Dosage: TOTAL DAILY DOSE: 450 MG, BID
     Route: 048
     Dates: start: 20150306, end: 20150310
  10. DIFLUPREDNATE [Concomitant]
     Active Substance: DIFLUPREDNATE
     Indication: RASH
     Dosage: TOTAL DAILY DOSE: 1 APPLICATION,PRN
     Route: 061
     Dates: start: 20150306
  11. PEMBROLIZUMAB. [Suspect]
     Active Substance: PEMBROLIZUMAB
     Dosage: 10 MG/KG, Q2W
     Route: 042
     Dates: start: 20150306, end: 20150306
  12. ALLEGRA [Concomitant]
     Active Substance: FEXOFENADINE HYDROCHLORIDE
     Indication: PRURITUS
     Dosage: TOTAL DAILY DOSE: 120 MG, BID
     Route: 048
     Dates: start: 20140919, end: 20150306
  13. PREDONINE [Concomitant]
     Active Substance: PREDNISOLONE\PREDNISOLONE ACETATE\PREDNISOLONE SODIUM SUCCINATE
     Indication: PEMPHIGOID
     Dosage: 30 MG, QD
     Route: 048
     Dates: start: 20150303, end: 20150403
  14. GLIMEPIRIDE. [Concomitant]
     Active Substance: GLIMEPIRIDE
     Dosage: TOTAL DAILY DOSE: 0.5 MG, UNK
     Dates: start: 20150424

REACTIONS (1)
  - Pemphigoid [Recovered/Resolved]

NARRATIVE: CASE EVENT DATE: 20150310
